FAERS Safety Report 9228940 (Version 1)
Quarter: 2013Q2

REPORT INFORMATION
  Report Type: Spontaneous
  Country: US (occurrence: US)
  Receive Date: 20130412
  Receipt Date: 20130412
  Transmission Date: 20140414
  Serious: Yes (Hospitalization, Other)
  Sender: FDA-Public Use
  Company Number: PHHY2013US034660

PATIENT
  Age: 17 Year
  Sex: Female

DRUGS (1)
  1. BUPROPION [Suspect]
     Dosage: 150 MG, PER DAY

REACTIONS (7)
  - Convulsion [Recovered/Resolved]
  - Foaming at mouth [Recovered/Resolved]
  - Dyskinesia [Recovered/Resolved]
  - Gaze palsy [Recovered/Resolved]
  - Hypokalaemia [Recovered/Resolved]
  - Suicide attempt [Unknown]
  - Intentional overdose [Unknown]
